FAERS Safety Report 8138490-3 (Version None)
Quarter: 2012Q1

REPORT INFORMATION
  Report Type: 
  Country: None (occurrence: None)
  Receive Date: 20120215
  Receipt Date: 20120210
  Transmission Date: 20120608
  Serious: Yes (Other)
  Sender: FDA-Public Use
  Company Number: US-PFIZER INC-2012037131

PATIENT
  Sex: Male

DRUGS (2)
  1. BUTRANS [Suspect]
     Dosage: 20 MCG
  2. LYRICA [Suspect]
     Dosage: UNK

REACTIONS (3)
  - DRUG EFFECT DECREASED [None]
  - SCIATICA [None]
  - CEREBROVASCULAR ACCIDENT [None]
